FAERS Safety Report 25508560 (Version 1)
Quarter: 2025Q3

REPORT INFORMATION
  Report Type: Report from Study
  Country: GB (occurrence: GB)
  Receive Date: 20250703
  Receipt Date: 20250703
  Transmission Date: 20251020
  Serious: Yes (Other)
  Sender: UCB
  Company Number: GB-UCBSA-2025029885

PATIENT
  Sex: Female

DRUGS (1)
  1. CERTOLIZUMAB PEGOL [Suspect]
     Active Substance: CERTOLIZUMAB PEGOL
     Indication: Product used for unknown indication

REACTIONS (4)
  - Lower respiratory tract infection [Unknown]
  - Oropharyngeal pain [Unknown]
  - Malaise [Unknown]
  - Ear infection [Unknown]
